FAERS Safety Report 6145094-0 (Version None)
Quarter: 2009Q2

REPORT INFORMATION
  Report Type: 
  Country: None (occurrence: None)
  Receive Date: 20090406
  Receipt Date: 20090115
  Transmission Date: 20091009
  Serious: No
  Sender: FDA-Public Use
  Company Number: A0764612A

PATIENT
  Age: 72 Year
  Sex: Female

DRUGS (5)
  1. ADVAIR HFA [Suspect]
     Indication: CHRONIC OBSTRUCTIVE PULMONARY DISEASE
     Route: 055
     Dates: start: 20080801
  2. ADVAIR HFA [Suspect]
     Route: 055
  3. SPIRIVA [Concomitant]
  4. ALBUTEROL [Concomitant]
  5. PRILOSEC [Concomitant]

REACTIONS (2)
  - APHONIA [None]
  - OROPHARYNGEAL PAIN [None]
